FAERS Safety Report 6061086-4 (Version None)
Quarter: 2009Q1

REPORT INFORMATION
  Report Type: 
  Country: None (occurrence: None)
  Receive Date: 20090202
  Receipt Date: 20090126
  Transmission Date: 20090719
  Serious: Yes (Hospitalization)
  Sender: FDA-Public Use
  Company Number: US-ABBOTT-09P-163-0499697-00

PATIENT
  Sex: Male
  Weight: 70.37 kg

DRUGS (8)
  1. HUMIRA [Suspect]
     Indication: CROHN'S DISEASE
     Route: 058
     Dates: start: 20080101, end: 20080101
  2. HUMIRA [Suspect]
     Route: 058
     Dates: start: 20081218
  3. UROXATRAL [Concomitant]
     Indication: PROSTATOMEGALY
  4. HYDROCHLOROTHIAZIDE [Concomitant]
     Indication: OEDEMA PERIPHERAL
  5. OXYCODONE HCL [Concomitant]
     Indication: PAIN
  6. OXYCODONE HCL [Concomitant]
     Indication: NEUROPATHY PERIPHERAL
  7. CLONAZEPAM [Concomitant]
     Indication: TREMOR
  8. CLONAZEPAM [Concomitant]
     Indication: PROPHYLAXIS

REACTIONS (5)
  - ABDOMINAL DISTENSION [None]
  - CROHN'S DISEASE [None]
  - DRUG INEFFECTIVE [None]
  - INTESTINAL OBSTRUCTION [None]
  - VOMITING [None]
